FAERS Safety Report 6294516-3 (Version None)
Quarter: 2009Q3

REPORT INFORMATION
  Report Type: 
  Country: None (occurrence: None)
  Receive Date: 20090803
  Receipt Date: 20090723
  Transmission Date: 20100115
  Serious: Yes (Other)
  Sender: FDA-Public Use
  Company Number: DE-AMGEN-QUU357045

PATIENT
  Sex: Male
  Weight: 92 kg

DRUGS (1)
  1. NEUPOGEN [Suspect]
     Indication: DRUG USE FOR UNKNOWN INDICATION
     Route: 058
     Dates: start: 20090122, end: 20090126

REACTIONS (2)
  - ANEURYSMAL BONE CYST [None]
  - BONE GIANT CELL TUMOUR [None]
